FAERS Safety Report 21954433 (Version 1)
Quarter: 2023Q1

REPORT INFORMATION
  Report Type: Spontaneous
  Country: US (occurrence: US)
  Receive Date: 20230204
  Receipt Date: 20230204
  Transmission Date: 20230418
  Serious: No
  Sender: FDA-Public Use
  Company Number: US-SANOFI-01473404

PATIENT
  Sex: Female

DRUGS (2)
  1. LANTUS SOLOSTAR [Suspect]
     Active Substance: INSULIN GLARGINE
     Indication: Type 2 diabetes mellitus
  2. NOVOLOG [Suspect]
     Active Substance: INSULIN ASPART
     Dosage: 20 UNITS THREE TIMES A DAY

REACTIONS (1)
  - Intentional product use issue [Unknown]
